FAERS Safety Report 21178458 (Version 1)
Quarter: 2022Q3

REPORT INFORMATION
  Report Type: Spontaneous
  Country: CN (occurrence: CN)
  Receive Date: 20220805
  Receipt Date: 20220805
  Transmission Date: 20221026
  Serious: Yes (Hospitalization, Other)
  Sender: FDA-Public Use
  Company Number: CN-PFIZER INC-PV202200036592

PATIENT
  Age: 35 Year
  Sex: Female
  Weight: 52 kg

DRUGS (4)
  1. SERTRALINE HYDROCHLORIDE [Suspect]
     Active Substance: SERTRALINE HYDROCHLORIDE
     Indication: Bipolar disorder
     Dosage: EVERY MORNING
     Route: 048
     Dates: start: 20220617, end: 20220718
  2. LAMICTAL [Suspect]
     Active Substance: LAMOTRIGINE
     Indication: Bipolar disorder
     Dosage: 50 MG, 2X/DAY
     Route: 048
     Dates: start: 20220629, end: 20220718
  3. LORAZEPAM [Suspect]
     Active Substance: LORAZEPAM
     Indication: Bipolar disorder
     Dosage: EVERY NIGHT
     Route: 048
     Dates: start: 20220701, end: 20220718
  4. OLANZAPINE [Concomitant]
     Active Substance: OLANZAPINE
     Dosage: EVERY NIGHT
     Route: 048
     Dates: start: 20220621

REACTIONS (12)
  - Hepatic function abnormal [Recovering/Resolving]
  - Rash [Recovering/Resolving]
  - Pruritus [Recovering/Resolving]
  - Oedema [Recovering/Resolving]
  - Face oedema [Recovering/Resolving]
  - Lip oedema [Recovering/Resolving]
  - Oedema peripheral [Recovering/Resolving]
  - Papule [Recovering/Resolving]
  - Rash maculo-papular [Recovering/Resolving]
  - Pyrexia [Recovering/Resolving]
  - Drug hypersensitivity [Recovering/Resolving]
  - Off label use [Unknown]

NARRATIVE: CASE EVENT DATE: 20220617
